FAERS Safety Report 5857894-2 (Version None)
Quarter: 2008Q3

REPORT INFORMATION
  Report Type: 
  Country: None (occurrence: None)
  Receive Date: 20080826
  Receipt Date: 20080820
  Transmission Date: 20090109
  Serious: Yes (Hospitalization, Other)
  Sender: FDA-Public Use
  Company Number: US-JNJFOC-20080804911

PATIENT
  Sex: Female

DRUGS (1)
  1. REOPRO [Suspect]
     Indication: MYOCARDIAL INFARCTION
     Route: 065

REACTIONS (3)
  - CEREBROVASCULAR ACCIDENT [None]
  - CONTUSION [None]
  - DRUG HYPERSENSITIVITY [None]
